FAERS Safety Report 11157219 (Version 1)
Quarter: 2015Q2

REPORT INFORMATION
  Report Type: Spontaneous
  Country: CH (occurrence: CH)
  Receive Date: 20150602
  Receipt Date: 20150602
  Transmission Date: 20150821
  Serious: Yes (Other)
  Sender: FDA-Public Use
  Company Number: PHHY2015CH063085

PATIENT
  Age: 0 Day
  Sex: Female

DRUGS (1)
  1. RIFAMPICIN+ISONIAZID SANDOZ [Suspect]
     Active Substance: ISONIAZID\RIFAMPIN
     Indication: ADRENAL GLAND TUBERCULOSIS
     Dosage: 150 MG, Q6H
     Route: 063
     Dates: start: 20150206

REACTIONS (5)
  - Aspartate aminotransferase increased [None]
  - Gamma-glutamyltransferase increased [None]
  - Cholestatic liver injury [Recovered/Resolved]
  - Alanine aminotransferase increased [None]
  - Exposure during breast feeding [Unknown]

NARRATIVE: CASE EVENT DATE: 20150206
